FAERS Safety Report 8299240-3 (Version None)
Quarter: 2012Q2

REPORT INFORMATION
  Report Type: 
  Country: None (occurrence: None)
  Receive Date: 20120419
  Receipt Date: 20120417
  Transmission Date: 20120825
  Serious: Yes (Other)
  Sender: FDA-Public Use
  Company Number: US-PFIZER INC-2012095400

PATIENT
  Sex: Female
  Weight: 52.154 kg

DRUGS (3)
  1. CHANTIX [Suspect]
     Indication: SMOKING CESSATION THERAPY
     Dosage: 0.5 MG, 1X/DAY
     Route: 048
     Dates: start: 20120305, end: 20120401
  2. ADDERALL 5 [Concomitant]
     Indication: ATTENTION DEFICIT/HYPERACTIVITY DISORDER
     Dosage: UNK
  3. PERCOCET [Concomitant]
     Indication: BACK PAIN
     Dosage: UNK

REACTIONS (5)
  - INSOMNIA [None]
  - CRYING [None]
  - EMOTIONAL DISORDER [None]
  - DEPRESSION [None]
  - HALLUCINATION, AUDITORY [None]
